FAERS Safety Report 6756278-2 (Version None)
Quarter: 2010Q2

REPORT INFORMATION
  Report Type: 
  Country: None (occurrence: None)
  Receive Date: 20100604
  Receipt Date: 20100531
  Transmission Date: 20101027
  Serious: Yes (Life-Threatening)
  Sender: FDA-Public Use
  Company Number: IT-ROCHE-698463

PATIENT
  Sex: Female

DRUGS (2)
  1. AVASTIN [Suspect]
     Indication: BREAST CANCER
     Dosage: FREQUENCY: CYCLE
     Route: 042
     Dates: start: 20080530, end: 20100309
  2. PACLITAXEL [Concomitant]
     Route: 065

REACTIONS (1)
  - CARDIAC FAILURE [None]
